FAERS Safety Report 17046148 (Version 2)
Quarter: 2020Q1

REPORT INFORMATION
  Report Type: Spontaneous
  Country: US (occurrence: US)
  Receive Date: 20191119
  Receipt Date: 20200222
  Transmission Date: 20200409
  Serious: Yes (Hospitalization, Other)
  Sender: FDA-Public Use
  Company Number: US-009507513-1911USA006272

PATIENT
  Sex: Male

DRUGS (1)
  1. EMEND [Suspect]
     Active Substance: APREPITANT
     Indication: TESTIS CANCER
     Dosage: ONE DOSE PER DAY
     Route: 042
     Dates: start: 20191028, end: 20191101

REACTIONS (6)
  - Blindness [Unknown]
  - Nausea [Unknown]
  - Vomiting [Unknown]
  - Vision blurred [Unknown]
  - Nystagmus [Unknown]
  - Inappropriate schedule of product administration [Unknown]

NARRATIVE: CASE EVENT DATE: 2019
